FAERS Safety Report 6751389-X (Version None)
Quarter: 2010Q2

REPORT INFORMATION
  Report Type: 
  Country: None (occurrence: None)
  Receive Date: 20100528
  Receipt Date: 20100521
  Transmission Date: 20101027
  Serious: Yes (Hospitalization)
  Sender: FDA-Public Use
  Company Number: TCI2010A01836

PATIENT
  Age: 63 Year
  Sex: Female

DRUGS (6)
  1. ACTOS [Suspect]
     Indication: TYPE 2 DIABETES MELLITUS
     Dosage: 15 MG (15 MG,1 IN 1 D) PER ORAL
     Route: 048
     Dates: start: 20100512, end: 20100512
  2. GLYCLAMIN (SODIUM GUALENATE) [Concomitant]
  3. URSO 250 [Concomitant]
  4. OMEPRAZOLE [Concomitant]
  5. PEGASYS [Concomitant]
  6. HISHIPHAGEN-C (MONOAMMONIUM GLYCYRRHIZINATE) [Concomitant]

REACTIONS (2)
  - DECREASED APPETITE [None]
  - NAUSEA [None]
